FAERS Safety Report 11529461 (Version 1)
Quarter: 2015Q3

REPORT INFORMATION
  Report Type: Spontaneous
  Country: US (occurrence: None)
  Receive Date: 20150918
  Receipt Date: 20150918
  Transmission Date: 20151125
  Serious: Yes (Other)
  Sender: FDA-Public Use
  Company Number: None

PATIENT
  Age: 35 Year
  Sex: Female
  Weight: 95.26 kg

DRUGS (7)
  1. HYDROCHLOROTHIAZIDE. [Suspect]
     Active Substance: HYDROCHLOROTHIAZIDE
     Indication: BLOOD PRESSURE MEASUREMENT
     Dosage: 1.5
     Route: 048
     Dates: start: 20150716, end: 20150801
  2. TOPAMAX [Concomitant]
     Active Substance: TOPIRAMATE
  3. CYMBALTA [Concomitant]
     Active Substance: DULOXETINE HYDROCHLORIDE
  4. TOPRAL XL [Concomitant]
  5. HYDROCHLOROTHIAZIDE. [Suspect]
     Active Substance: HYDROCHLOROTHIAZIDE
     Indication: FLUID RETENTION
     Dosage: 1.5
     Route: 048
     Dates: start: 20150716, end: 20150801
  6. BUSPAR [Concomitant]
     Active Substance: BUSPIRONE HYDROCHLORIDE
  7. BONTRIL [Concomitant]
     Active Substance: PHENDIMETRAZINE TARTRATE

REACTIONS (4)
  - Contusion [None]
  - Loss of consciousness [None]
  - Medical device pain [None]
  - Fall [None]

NARRATIVE: CASE EVENT DATE: 20150716
